FAERS Safety Report 8885912 (Version 1)
Quarter: 2012Q4

REPORT INFORMATION
  Report Type: 
  Country: BE (occurrence: BE)
  Receive Date: 20121105
  Receipt Date: 20121105
  Transmission Date: 20130627
  Serious: Yes (Death, Hospitalization)
  Sender: FDA-Public Use
  Company Number: PHHO2011BE17785

PATIENT
  Age: 78 Year
  Sex: Male

DRUGS (11)
  1. ALISKIREN [Suspect]
     Indication: CARDIAC FAILURE
     Route: 048
     Dates: start: 20110517, end: 20111018
  2. THEOPHYLLINE [Concomitant]
     Indication: CHRONIC OBSTRUCTIVE PULMONARY DISEASE
     Dosage: 400 mg, QD
     Route: 048
     Dates: start: 20101201
  3. ACETYLSALICYLIC ACID [Concomitant]
     Indication: TRANSIENT ISCHAEMIC ATTACK
     Dosage: 80 mg, QD
     Route: 048
     Dates: start: 20110515
  4. PANTOPRAZOLE [Concomitant]
     Indication: PROPHYLAXIS
     Dosage: 20 mg, QD
     Route: 048
     Dates: start: 20110515
  5. CARVEDILOL [Concomitant]
     Indication: HYPERTENSION
     Dosage: 3.5 mg, QD
     Route: 048
     Dates: start: 20101201
  6. CARVEDILOL [Concomitant]
     Indication: CARDIAC FAILURE
  7. DOMPERIDONE [Concomitant]
     Indication: PROPHYLAXIS
     Dosage: 10 mg, QD
     Route: 048
     Dates: start: 20100515, end: 20111018
  8. WARFARIN [Concomitant]
     Indication: TRANSIENT ISCHAEMIC ATTACK
     Dosage: 5 mg, QD
     Dates: start: 20110515
  9. BUMETANIDE [Concomitant]
     Indication: CARDIAC FAILURE
     Dosage: 25 mg, QD
     Route: 048
     Dates: start: 20110803, end: 20111027
  10. TIOTROPIUM [Concomitant]
     Indication: CHRONIC OBSTRUCTIVE PULMONARY DISEASE
     Dosage: UNK
     Dates: start: 20090422
  11. FLUTICASONE [Concomitant]
     Indication: CHRONIC OBSTRUCTIVE PULMONARY DISEASE
     Dosage: 50/250 2X 1D
     Dates: start: 20090422

REACTIONS (5)
  - Cardiac failure [Fatal]
  - Femur fracture [Fatal]
  - Pubis fracture [Fatal]
  - Cardiogenic shock [Fatal]
  - Renal impairment [Fatal]
